FAERS Safety Report 6884621-2 (Version None)
Quarter: 2010Q3

REPORT INFORMATION
  Report Type: 
  Country: None (occurrence: None)
  Receive Date: 20100729
  Receipt Date: 20070814
  Transmission Date: 20110219
  Serious: Yes (Other)
  Sender: FDA-Public Use
  Company Number: US-PFIZER INC-2007060503

PATIENT
  Sex: Female
  Weight: 63.636 kg

DRUGS (2)
  1. ACCUPRIL [Suspect]
     Indication: HYPERTENSION
     Dates: start: 20051001, end: 20060201
  2. ACCUPRIL [Suspect]
     Dates: start: 20060201, end: 20060601

REACTIONS (1)
  - ANGIOEDEMA [None]
